FAERS Safety Report 4268955-6 (Version None)
Quarter: 2004Q1

REPORT INFORMATION
  Report Type: 
  Country: None (occurrence: None)
  Receive Date: 20040109
  Receipt Date: 20031222
  Transmission Date: 20041129
  Serious: Yes (Death, Life-Threatening, Hospitalization)
  Sender: FDA-Public Use
  Company Number: EWC031237504

PATIENT
  Age: 51 Year
  Sex: Male
  Weight: 50 kg

DRUGS (3)
  1. GEMCITABINE HYDROCHLORIDE-IV (GEMCITABINE) [Suspect]
     Indication: METASTASIS
     Dosage: 1000 MG/M2/ 1 OTHER
     Route: 050
     Dates: start: 20031203, end: 20031203
  2. GEMCITABINE HYDROCHLORIDE-IV (GEMCITABINE) [Suspect]
     Indication: RENAL DISORDER
     Dosage: 1000 MG/M2/ 1 OTHER
     Route: 050
     Dates: start: 20031203, end: 20031203
  3. GEMCITABINE HYDROCHLORIDE-IV (GEMCITABINE) [Suspect]
     Indication: TRANSITIONAL CELL CARCINOMA
     Dosage: 1000 MG/M2/ 1 OTHER
     Route: 050
     Dates: start: 20031203, end: 20031203

REACTIONS (5)
  - ASTHENIA [None]
  - DYSPNOEA [None]
  - HYPOTHERMIA [None]
  - LEUKOPENIA [None]
  - LUNG INFILTRATION [None]
